FAERS Safety Report 9418599 (Version 1)
Quarter: 2013Q3

REPORT INFORMATION
  Report Type: Spontaneous
  Country: AU (occurrence: AU)
  Receive Date: 20130725
  Receipt Date: 20130725
  Transmission Date: 20140515
  Serious: Yes (Hospitalization)
  Sender: FDA-Public Use
  Company Number: AU-009507513-1307AUS007823

PATIENT
  Age: 30 Month
  Sex: Male

DRUGS (4)
  1. CLARATYNE [Suspect]
     Dosage: 2-3 X 10 MG
     Route: 048
     Dates: start: 20061203, end: 20061203
  2. RENNIE [Suspect]
     Dosage: A FEW
     Route: 048
     Dates: start: 20061203, end: 20061203
  3. SUDAFED 12 HOUR [Suspect]
     Dosage: UNK
     Route: 048
     Dates: start: 20061203, end: 20061203
  4. ZANTAC [Suspect]
     Dosage: UNK
     Route: 048
     Dates: start: 20061203, end: 20061203

REACTIONS (2)
  - Accidental exposure to product by child [Unknown]
  - Accidental overdose [Unknown]
